FAERS Safety Report 4844759-8 (Version None)
Quarter: 2005Q4

REPORT INFORMATION
  Report Type: 
  Country: None (occurrence: None)
  Receive Date: 20051205
  Receipt Date: 20051125
  Transmission Date: 20060501
  Serious: Yes (Other)
  Sender: FDA-Public Use
  Company Number: US-KINGPHARMUSA00001-K200501523

PATIENT
  Age: 55 Year
  Sex: Male

DRUGS (2)
  1. ALTACE [Suspect]
  2. AUROTHIOMALATE [Suspect]
     Indication: RHEUMATOID ARTHRITIS
     Dosage: 50 MG, QD
     Route: 030
     Dates: start: 20000101

REACTIONS (5)
  - DRUG INTERACTION [None]
  - FLUSHING [None]
  - HYPERHIDROSIS [None]
  - NAUSEA [None]
  - VOMITING [None]
